FAERS Safety Report 14967726 (Version 1)
Quarter: 2018Q2

REPORT INFORMATION
  Report Type: Spontaneous
  Country: US (occurrence: US)
  Receive Date: 20180511
  Receipt Date: 20180511
  Transmission Date: 20180711
  Serious: No
  Sender: FDA-Public Use
  Company Number: None

PATIENT
  Age: 87 Year
  Sex: Female

DRUGS (1)
  1. RAYALDEE [Suspect]
     Active Substance: CALCIFEDIOL
     Indication: HYPERPARATHYROIDISM
     Route: 048
     Dates: start: 20180420, end: 20180422

REACTIONS (4)
  - Confusional state [None]
  - Feeling abnormal [None]
  - Disturbance in attention [None]
  - Dizziness [None]

NARRATIVE: CASE EVENT DATE: 20180422
